FAERS Safety Report 25575007 (Version 1)
Quarter: 2025Q3

REPORT INFORMATION
  Report Type: Report from Study
  Country: US (occurrence: US)
  Receive Date: 20250718
  Receipt Date: 20250718
  Transmission Date: 20251020
  Serious: Yes (Hospitalization)
  Sender: GRIFOLS
  Company Number: US-IGSA-BIG0036507

PATIENT
  Sex: Female
  Weight: 80.272 kg

DRUGS (17)
  1. PROLASTIN-C LIQUID [Suspect]
     Active Substance: .ALPHA.1-PROTEINASE INHIBITOR HUMAN
     Indication: Alpha-1 antitrypsin deficiency
     Dosage: 4472 MILLIGRAM, Q.WK.
     Route: 042
  2. FLUTICASONE PROPIONATE [Concomitant]
     Active Substance: FLUTICASONE PROPIONATE
  3. ALBUTEROL SULFATE [Concomitant]
     Active Substance: ALBUTEROL SULFATE
  4. ZYRTEC [Concomitant]
     Active Substance: CETIRIZINE HYDROCHLORIDE
     Route: 048
  5. AFLURIA QUAD [Concomitant]
  6. DILTIAZEM [Concomitant]
     Active Substance: DILTIAZEM
  7. CLOPIDOGREL [Concomitant]
     Active Substance: CLOPIDOGREL BISULFATE
     Route: 048
  8. REPATHA [Concomitant]
     Active Substance: EVOLOCUMAB
  9. ALBUTEROL\IPRATROPIUM [Concomitant]
     Active Substance: ALBUTEROL\IPRATROPIUM
  10. COMBIVENT RESPIMAT [Concomitant]
     Active Substance: ALBUTEROL SULFATE\IPRATROPIUM BROMIDE
  11. CETIRIZINE HCL [Concomitant]
     Active Substance: CETIRIZINE HYDROCHLORIDE
     Route: 048
  12. MONTELUKAST SODIUM [Concomitant]
     Active Substance: MONTELUKAST SODIUM
     Route: 048
  13. FAMOTIDINE [Concomitant]
     Active Substance: FAMOTIDINE
     Route: 048
  14. FLOVENT HFA [Concomitant]
     Active Substance: FLUTICASONE PROPIONATE
  15. RESTASIS [Concomitant]
     Active Substance: CYCLOSPORINE
  16. POTASSIUM CHLORIDE [Concomitant]
     Active Substance: POTASSIUM CHLORIDE
  17. CHLORTHALIDONE [Concomitant]
     Active Substance: CHLORTHALIDONE
     Route: 048

REACTIONS (2)
  - Illness [Recovered/Resolved]
  - Pneumonia [Unknown]

NARRATIVE: CASE EVENT DATE: 20250101
